FAERS Safety Report 24832916 (Version 1)
Quarter: 2025Q1

REPORT INFORMATION
  Report Type: Spontaneous
  Country: US (occurrence: US)
  Receive Date: 20250111
  Receipt Date: 20250111
  Transmission Date: 20250409
  Serious: No
  Sender: DR REDDYS
  Company Number: US-DRL-USA-USA/2025/01/000325

PATIENT
  Age: 32 Year
  Sex: Female

DRUGS (1)
  1. HALOETTE [Suspect]
     Active Substance: ETHINYL ESTRADIOL\ETONOGESTREL
     Indication: Contraception
     Route: 065

REACTIONS (1)
  - Muscle spasms [Unknown]
